FAERS Safety Report 10503323 (Version 3)
Quarter: 2016Q3

REPORT INFORMATION
  Report Type: Other
  Country: TW (occurrence: TW)
  Receive Date: 20141008
  Receipt Date: 20160907
  Transmission Date: 20161109
  Serious: Yes (Hospitalization, Disabling)
  Sender: FDA-Public Use
  Company Number: TW-UNITED THERAPEUTICS-UNT-2014-008514

PATIENT
  Sex: Female
  Weight: 80 kg

DRUGS (1)
  1. REMODULIN [Suspect]
     Active Substance: TREPROSTINIL
     Indication: PULMONARY ARTERIAL HYPERTENSION
     Dosage: 0.031 ?G/KG, CONTINUING
     Route: 058
     Dates: start: 20111018

REACTIONS (6)
  - Decubitus ulcer [Not Recovered/Not Resolved]
  - Generalised oedema [Recovering/Resolving]
  - Urinary tract infection [Recovering/Resolving]
  - Pruritus generalised [Recovering/Resolving]
  - Pyrexia [Recovered/Resolved]
  - Bedridden [Not Recovered/Not Resolved]

NARRATIVE: CASE EVENT DATE: 201408
